FAERS Safety Report 4802773-2 (Version None)
Quarter: 2005Q4

REPORT INFORMATION
  Report Type: 
  Country: None (occurrence: None)
  Receive Date: 20051017
  Receipt Date: 20051017
  Transmission Date: 20060501
  Serious: Yes (Life-Threatening, Hospitalization)
  Sender: FDA-Public Use
  Company Number: None

PATIENT
  Age: 64 Year
  Sex: Male
  Weight: 100.2449 kg

DRUGS (11)
  1. BYETTA [Suspect]
     Indication: DIABETES MELLITUS
     Dosage: SQ
     Route: 058
     Dates: start: 20050801, end: 20050928
  2. ZOCOR [Suspect]
     Indication: HYPERCHOLESTEROLAEMIA
     Dosage: 80MG DAILY PO
     Route: 048
     Dates: start: 20050701, end: 20050928
  3. METOPROLOL [Concomitant]
  4. OMEPRAZOLE [Concomitant]
  5. LANTUS [Concomitant]
  6. HUMALOG [Concomitant]
  7. LASIX [Concomitant]
  8. LISINOPRIL [Concomitant]
  9. ALBUTEROL [Concomitant]
  10. NORVASC [Concomitant]
  11. RISPERDAL [Concomitant]

REACTIONS (2)
  - DYSSTASIA [None]
  - RHABDOMYOLYSIS [None]
